FAERS Safety Report 21781396 (Version 6)
Quarter: 2023Q1

REPORT INFORMATION
  Report Type: Spontaneous
  Country: US (occurrence: US)
  Receive Date: 20221227
  Receipt Date: 20230206
  Transmission Date: 20230418
  Serious: No
  Sender: FDA-Public Use
  Company Number: US-PFIZER INC-202201388517

PATIENT
  Age: 52 Year
  Sex: Male
  Weight: 81.65 kg

DRUGS (2)
  1. GENOTROPIN [Suspect]
     Active Substance: SOMATROPIN
     Indication: Blood testosterone decreased
     Dosage: 4MG INJECTED NIGHTLY BEFORE BED
  2. GENOTROPIN [Suspect]
     Active Substance: SOMATROPIN
     Indication: Blood growth hormone decreased
     Dosage: 0.5 MG, DAILY

REACTIONS (4)
  - Expired device used [Unknown]
  - Drug dose omission by device [Unknown]
  - Device mechanical issue [Unknown]
  - Device issue [Unknown]

NARRATIVE: CASE EVENT DATE: 20221215
